FAERS Safety Report 20018042 (Version 1)
Quarter: 2021Q4

REPORT INFORMATION
  Report Type: Report from Study
  Country: GB (occurrence: GB)
  Receive Date: 20211101
  Receipt Date: 20211101
  Transmission Date: 20220303
  Serious: Yes (Other)
  Sender: FDA-Public Use
  Company Number: GB-ROCHE-2861190

PATIENT
  Age: 65 Year
  Sex: Male
  Weight: 83.95 kg

DRUGS (19)
  1. CARBOPLATIN [Suspect]
     Active Substance: CARBOPLATIN
     Indication: Non-small cell lung cancer
     Dosage: 400 MG, ON31/MAY/2021 HE RECEIVED DOSE OF CARBOPLATIN (400 MG)
     Route: 065
  2. PACLITAXEL [Suspect]
     Active Substance: PACLITAXEL
     Indication: Non-small cell lung cancer
     Dosage: 270 MG, ON31/MAY/2021 HE RECEIVED DOSE OF PACLITAXEL (270 MG)
     Route: 065
  3. ATEZOLIZUMAB [Suspect]
     Active Substance: ATEZOLIZUMAB
     Indication: Non-small cell lung cancer
     Dosage: 1200 MG, ON 21/JUN/2021 HE RECEIVED DOSE OF ATEZOLIZUMAB (1200 MG).
     Route: 042
  4. BEVACIZUMAB [Suspect]
     Active Substance: BEVACIZUMAB
     Indication: Non-small cell lung cancer
     Dosage: ON31/MAY/2021 HE RECEIVED DOSE OF BEVACIZUMAB (1200 MG)
     Route: 042
  5. AFATINIB [Concomitant]
     Active Substance: AFATINIB
     Indication: Neoplasm malignant
  6. DEXAMETHASONE [Concomitant]
     Active Substance: DEXAMETHASONE
     Dosage: 13.2 MG
     Route: 065
     Dates: start: 20210531, end: 20210531
  7. DEXAMETHASONE [Concomitant]
     Active Substance: DEXAMETHASONE
     Dosage: 16.5 MG
     Route: 065
     Dates: start: 20210621, end: 20210621
  8. DEXAMETHASONE [Concomitant]
     Active Substance: DEXAMETHASONE
     Dosage: 16.5 MG
     Route: 065
     Dates: start: 20210416, end: 20210416
  9. EVACAL D3 [Concomitant]
     Dosage: CHEWABLE
     Route: 065
  10. ERLOTINIB [Concomitant]
     Active Substance: ERLOTINIB
     Indication: Neoplasm malignant
  11. FAMOTIDINE [Concomitant]
     Active Substance: FAMOTIDINE
     Dosage: 20 MG
     Route: 065
     Dates: start: 20210621, end: 20210621
  12. FAMOTIDINE [Concomitant]
     Active Substance: FAMOTIDINE
     Dosage: 20 MG
     Route: 065
     Dates: start: 20210531, end: 20210531
  13. FAMOTIDINE [Concomitant]
     Active Substance: FAMOTIDINE
     Dosage: 20 MG
     Route: 065
     Dates: start: 20210416, end: 20210416
  14. FELODIPINE [Concomitant]
     Active Substance: FELODIPINE
     Dosage: 20 MILLIGRAM DAILY;
     Route: 065
     Dates: start: 20210416, end: 20210416
  15. LEVOTHYROXINE [Concomitant]
     Active Substance: LEVOTHYROXINE
     Route: 065
  16. OMEPRAZOLE [Concomitant]
     Active Substance: OMEPRAZOLE
     Route: 065
  17. ONDANSETRON [Concomitant]
     Active Substance: ONDANSETRON
     Dosage: 16 MG
     Route: 065
     Dates: start: 20210621, end: 20210621
  18. ONDANSETRON [Concomitant]
     Active Substance: ONDANSETRON
     Dosage: 16 MG
     Route: 065
     Dates: start: 20210416, end: 20210416
  19. ONDANSETRON [Concomitant]
     Active Substance: ONDANSETRON
     Dosage: 16 MG
     Route: 065
     Dates: start: 20210531, end: 20210531

REACTIONS (2)
  - Autoimmune hepatitis [Recovered/Resolved]
  - Liver function test abnormal [Not Recovered/Not Resolved]

NARRATIVE: CASE EVENT DATE: 20210506
